FAERS Safety Report 4790311-2 (Version None)
Quarter: 2005Q4

REPORT INFORMATION
  Report Type: 
  Country: None (occurrence: None)
  Receive Date: 20051005
  Receipt Date: 20051005
  Transmission Date: 20060501
  Serious: Yes (Other)
  Sender: FDA-Public Use
  Company Number: None

PATIENT
  Sex: Female

DRUGS (12)
  1. BORTEZOMIB 2.2 MG IV [Suspect]
     Indication: MULTIPLE MYELOMA
     Dosage: Q 4 DAYS
     Route: 042
  2. VIT E [Concomitant]
  3. CELEBREX [Concomitant]
  4. CENTRUM [Concomitant]
  5. MSM [Concomitant]
  6. GLUCOSAMINE CHONDROYTON [Concomitant]
  7. PERCOCET [Concomitant]
  8. AVILIDE [Concomitant]
  9. SENNA [Concomitant]
  10. FLEXERIL [Concomitant]
  11. TYLENOL (CAPLET) [Concomitant]
  12. GREEN TEA [Concomitant]

REACTIONS (4)
  - INFUSION RELATED REACTION [None]
  - RASH MACULAR [None]
  - SWELLING FACE [None]
  - THROAT TIGHTNESS [None]
